FAERS Safety Report 16341430 (Version 2)
Quarter: 2019Q2

REPORT INFORMATION
  Report Type: Report from Study
  Country: BR (occurrence: BR)
  Receive Date: 20190522
  Receipt Date: 20190524
  Transmission Date: 20190711
  Serious: No
  Sender: FDA-Public Use
  Company Number: PHHY2019BR116382

PATIENT
  Age: 19 Year
  Sex: Male

DRUGS (1)
  1. COSENTYX [Suspect]
     Active Substance: SECUKINUMAB
     Indication: PRODUCT USED FOR UNKNOWN INDICATION
     Dosage: UNK UNK, QW
     Route: 065
     Dates: start: 20190413

REACTIONS (4)
  - Accidental exposure to product [Unknown]
  - Incorrect dose administered [Unknown]
  - Dengue fever [Unknown]
  - Device issue [Unknown]

NARRATIVE: CASE EVENT DATE: 20190513
